APPROVED DRUG PRODUCT: ZYKADIA
Active Ingredient: CERITINIB
Strength: 150MG
Dosage Form/Route: TABLET;ORAL
Application: N211225 | Product #001
Applicant: NOVARTIS PHARMACEUTICALS CORP
Approved: Mar 18, 2019 | RLD: Yes | RS: Yes | Type: RX

PATENTS:
Patent 8703787 | Expires: Feb 2, 2032
Patent 12357630 | Expires: Dec 13, 2037
Patent 8377921 | Expires: Nov 20, 2027
Patent 7893074 | Expires: Apr 25, 2026
Patent 8039479 | Expires: Jun 29, 2030
Patent 8399450 | Expires: Nov 20, 2027
Patent 7964592 | Expires: Apr 29, 2028
Patent 9309229 | Expires: Jan 18, 2032